FAERS Safety Report 16782670 (Version 1)
Quarter: 2019Q3

REPORT INFORMATION
  Report Type: Spontaneous
  Country: US (occurrence: US)
  Receive Date: 20190906
  Receipt Date: 20190906
  Transmission Date: 20191005
  Serious: No
  Sender: FDA-Public Use
  Company Number: US-SA-2019SA244505

PATIENT
  Age: 51 Year
  Sex: Female

DRUGS (1)
  1. CABLIVI [Suspect]
     Active Substance: CAPLACIZUMAB-YHDP
     Indication: THROMBOTIC MICROANGIOPATHY
     Dosage: 11 MG, QD
     Route: 058
     Dates: start: 20190524

REACTIONS (7)
  - Granulocytes abnormal [Unknown]
  - Red blood cell abnormality [Unknown]
  - Blood potassium abnormal [Unknown]
  - Aspartate aminotransferase abnormal [Unknown]
  - Reticulocyte percentage abnormal [Unknown]
  - Red cell distribution width abnormal [Unknown]
  - Haematocrit abnormal [Unknown]
